FAERS Safety Report 12962178 (Version 1)
Quarter: 2016Q4

REPORT INFORMATION
  Report Type: Spontaneous
  Country: PT (occurrence: PT)
  Receive Date: 20161121
  Receipt Date: 20161121
  Transmission Date: 20170207
  Serious: Yes (Other)
  Sender: FDA-Public Use
  Company Number: PT-EMD SERONO-E2B_80053613

PATIENT
  Age: 31 Year
  Sex: Female
  Weight: 60 kg

DRUGS (2)
  1. MENOPUR [Concomitant]
     Active Substance: FOLLICLE STIMULATING HORMONE BETA POLYPEPTIDE\LUTROPIN ALFA
     Indication: INFERTILITY
     Route: 030
     Dates: start: 20161022, end: 20161029
  2. GONAL-F [Suspect]
     Active Substance: FOLLITROPIN
     Indication: INFERTILITY
     Route: 030
     Dates: start: 20161022, end: 20161029

REACTIONS (5)
  - Panic attack [Unknown]
  - Arrhythmia [Unknown]
  - Dyspnoea [Unknown]
  - Myalgia [Unknown]
  - Tachycardia [Unknown]

NARRATIVE: CASE EVENT DATE: 201610
